FAERS Safety Report 5463238-0 (Version None)
Quarter: 2007Q3

REPORT INFORMATION
  Report Type: 
  Country: None (occurrence: None)
  Receive Date: 20070920
  Receipt Date: 20070910
  Transmission Date: 20080115
  Serious: Yes (Hospitalization)
  Sender: FDA-Public Use
  Company Number: AU-MERCK-0709AUS00064

PATIENT
  Age: 49 Year
  Sex: Male

DRUGS (1)
  1. NOROXIN [Suspect]
     Indication: PROSTATITIS
     Route: 048
     Dates: start: 20061201, end: 20061202

REACTIONS (3)
  - ARTERIOSPASM CORONARY [None]
  - CHEST PAIN [None]
  - TROPONIN INCREASED [None]
